FAERS Safety Report 6300610-0 (Version None)
Quarter: 2009Q3

REPORT INFORMATION
  Report Type: 
  Country: None (occurrence: None)
  Receive Date: 20090806
  Receipt Date: 20090623
  Transmission Date: 20100115
  Serious: No
  Sender: FDA-Public Use
  Company Number: US-ABBOTT-09P-163-0581893-00

PATIENT
  Sex: Male
  Weight: 90.8 kg

DRUGS (6)
  1. DEPAKOTE ER [Suspect]
     Indication: MIGRAINE
     Dates: start: 20090601
  2. DEPAKOTE ER [Suspect]
     Dosage: SAMPLES FOR 2 WEEKS
     Dates: start: 20090301, end: 20090601
  3. DIVALPROEX SODIUM [Suspect]
     Indication: DRUG USE FOR UNKNOWN INDICATION
     Dosage: 250 MG GENERIC: ONLY TOOK THREE DOSES
     Dates: start: 20090401, end: 20090401
  4. ASPIRIN [Concomitant]
     Indication: DRUG USE FOR UNKNOWN INDICATION
     Dosage: DAILY DOSE: 81 MILLIGRAMS
  5. PROTONIX [Concomitant]
     Indication: BARRETT'S OESOPHAGUS
     Dosage: DAILY DOSE: 40 MILLIGRAMS
  6. PRAVACHOL [Concomitant]
     Indication: BLOOD CHOLESTEROL INCREASED

REACTIONS (5)
  - ABDOMINAL DISCOMFORT [None]
  - ABDOMINAL PAIN UPPER [None]
  - DYSPEPSIA [None]
  - HEADACHE [None]
  - NAUSEA [None]
